FAERS Safety Report 13299205 (Version 5)
Quarter: 2017Q4

REPORT INFORMATION
  Report Type: Spontaneous
  Country: IT (occurrence: IT)
  Receive Date: 20170306
  Receipt Date: 20171031
  Transmission Date: 20180320
  Serious: Yes (Hospitalization)
  Sender: FDA-Public Use
  Company Number: IT-PFIZER INC-2017091759

PATIENT
  Age: 61 Year
  Sex: Male

DRUGS (9)
  1. AVASTIN [Suspect]
     Active Substance: BEVACIZUMAB
     Dosage: 400 MG, CYCLIC
     Route: 042
     Dates: start: 20161012
  2. AVASTIN [Suspect]
     Active Substance: BEVACIZUMAB
     Dosage: 400 MG, CYCLIC
     Route: 042
     Dates: end: 20161207
  3. AVASTIN [Suspect]
     Active Substance: BEVACIZUMAB
     Indication: COLON CANCER METASTATIC
     Dosage: 400 MG, CYCLIC
     Route: 042
     Dates: start: 20160926
  4. IRINOTECAN HCL [Suspect]
     Active Substance: IRINOTECAN HYDROCHLORIDE
     Indication: COLON CANCER METASTATIC
     Dosage: 300 MG, CYCLIC
     Route: 042
     Dates: start: 20160926, end: 20161207
  5. OXALIPLATIN. [Suspect]
     Active Substance: OXALIPLATIN
     Indication: COLON CANCER METASTATIC
     Dosage: 160 MG, CYCLIC
     Route: 042
     Dates: start: 20160826, end: 20161207
  6. AVASTIN [Suspect]
     Active Substance: BEVACIZUMAB
     Dosage: 400 MG, CYCLIC
     Route: 042
     Dates: start: 20161026
  7. AVASTIN [Suspect]
     Active Substance: BEVACIZUMAB
     Dosage: 400 MG, CYCLIC
     Route: 042
     Dates: start: 20161109
  8. FLUOROURACIL. [Suspect]
     Active Substance: FLUOROURACIL
     Indication: COLON CANCER METASTATIC
     Dosage: 6000 MG, CYCLIC
     Route: 042
     Dates: start: 20160926, end: 20161207
  9. AVASTIN [Suspect]
     Active Substance: BEVACIZUMAB
     Dosage: 400 MG, CYCLIC
     Route: 042
     Dates: start: 20161123

REACTIONS (2)
  - Cardiac failure congestive [Recovered/Resolved with Sequelae]
  - Dyspnoea [Recovered/Resolved with Sequelae]

NARRATIVE: CASE EVENT DATE: 20161226
